FAERS Safety Report 25812118 (Version 1)
Quarter: 2025Q3

REPORT INFORMATION
  Report Type: Spontaneous
  Country: US (occurrence: US)
  Receive Date: 20250917
  Receipt Date: 20250917
  Transmission Date: 20251021
  Serious: Yes (Death, Hospitalization, Other)
  Sender: AMGEN
  Company Number: US-AMGEN-USASP2025184559

PATIENT

DRUGS (7)
  1. RITUXIMAB [Suspect]
     Active Substance: RITUXIMAB
     Indication: Fibrillary glomerulonephritis
     Route: 065
  2. RITUXIMAB [Suspect]
     Active Substance: RITUXIMAB
     Indication: Anti-DNAJB9 antibody
  3. RITUXIMAB [Suspect]
     Active Substance: RITUXIMAB
     Indication: Immunosuppressant drug therapy
  4. ACTHAR [Concomitant]
     Active Substance: CORTICOTROPIN
     Indication: Fibrillary glomerulonephritis
     Dosage: 80 UNIT, 2 TIMES/WK
     Route: 058
  5. ACTHAR [Concomitant]
     Active Substance: CORTICOTROPIN
     Indication: Anti-DNAJB9 antibody
  6. TACROLIMUS [Concomitant]
     Active Substance: TACROLIMUS
     Indication: Fibrillary glomerulonephritis
     Dosage: 1 MILLIGRAM, BID
     Route: 048
  7. TACROLIMUS [Concomitant]
     Active Substance: TACROLIMUS
     Indication: Anti-DNAJB9 antibody

REACTIONS (13)
  - Cardiac arrest [Fatal]
  - Acute myocardial infarction [Fatal]
  - Respiratory failure [Fatal]
  - Chronic obstructive pulmonary disease [Fatal]
  - COVID-19 [Fatal]
  - Acute respiratory distress syndrome [Fatal]
  - Death [Fatal]
  - Pneumonia [Unknown]
  - Hypervolaemia [Unknown]
  - Hyperglycaemia [Unknown]
  - Fibrillary glomerulonephritis [Unknown]
  - End stage renal disease [Unknown]
  - Off label use [Unknown]
